FAERS Safety Report 8573644-3 (Version None)
Quarter: 2012Q3

REPORT INFORMATION
  Report Type: 
  Country: None (occurrence: None)
  Receive Date: 20120806
  Receipt Date: 20120803
  Transmission Date: 20120928
  Serious: Yes (Hospitalization, Other)
  Sender: FDA-Public Use
  Company Number: FR-ROCHE-1029278

PATIENT
  Sex: Male
  Weight: 50 kg

DRUGS (12)
  1. TACROLIMUS [Suspect]
     Indication: TRANSPLANT REJECTION
     Route: 048
     Dates: start: 20100903
  2. PREDNISONE TAB [Concomitant]
     Route: 048
     Dates: start: 20101019
  3. BACTRIM [Concomitant]
     Dates: start: 20100809
  4. FOLIC ACID [Concomitant]
     Route: 048
     Dates: start: 20111206
  5. OMEPRAZOLE [Concomitant]
     Route: 048
     Dates: start: 20101019
  6. ATORVASTATIN [Concomitant]
     Route: 048
     Dates: start: 20111206
  7. MIRCERA [Suspect]
     Indication: NEPHROGENIC ANAEMIA
  8. EUPRESSYL [Concomitant]
     Route: 048
     Dates: start: 20100809
  9. INSULIN NOVOMIX [Concomitant]
     Route: 058
     Dates: start: 20101019
  10. RAMIPRIL [Concomitant]
     Route: 048
     Dates: start: 20111206
  11. CELLCEPT [Suspect]
     Indication: TRANSPLANT REJECTION
     Route: 048
     Dates: start: 20100809
  12. AMLODIPINE BESYLATE [Concomitant]
     Route: 048
     Dates: start: 20101019

REACTIONS (2)
  - BICYTOPENIA [None]
  - ANAEMIA [None]
